FAERS Safety Report 8128341-5 (Version None)
Quarter: 2012Q1

REPORT INFORMATION
  Report Type: 
  Country: None (occurrence: None)
  Receive Date: 20120210
  Receipt Date: 20120208
  Transmission Date: 20120608
  Serious: No
  Sender: FDA-Public Use
  Company Number: US-PFIZER INC-2012035035

PATIENT
  Sex: Female
  Weight: 53.515 kg

DRUGS (2)
  1. PREMARIN [Suspect]
     Dosage: 0.625 MG, 1X/DAY
     Route: 048
     Dates: start: 20120207, end: 20120208
  2. DIOVAN [Concomitant]
     Dosage: 160 MG, UNK

REACTIONS (2)
  - NERVOUSNESS [None]
  - MOOD ALTERED [None]
